FAERS Safety Report 11778168 (Version 2)
Quarter: 2015Q4

REPORT INFORMATION
  Report Type: Spontaneous
  Country: None (occurrence: US)
  Receive Date: 20151125
  Receipt Date: 20151204
  Transmission Date: 20160304
  Serious: No
  Sender: FDA-Public Use
  Company Number: US-MERZ NORTH AMERICA, INC.-15MRZ-00654

PATIENT
  Age: 46 Year
  Sex: Female

DRUGS (1)
  1. XEOMIN [Suspect]
     Active Substance: INCOBOTULINUMTOXINA
     Indication: PRODUCT USED FOR UNKNOWN INDICATION
     Dosage: GLABELLAR 20 UNITS?CROW^S FEET 10UNITS?FRONTALIS 18 UNITS
     Dates: start: 20151120

REACTIONS (4)
  - Rash erythematous [None]
  - Skin discolouration [None]
  - Pallor [None]
  - Pruritus [None]
